FAERS Safety Report 11047785 (Version 1)
Quarter: 2015Q2

REPORT INFORMATION
  Report Type: Spontaneous
  Country: US (occurrence: US)
  Receive Date: 20150420
  Receipt Date: 20150420
  Transmission Date: 20150821
  Serious: No
  Sender: FDA-Public Use
  Company Number: US-ASTRAZENECA-2015SE34757

PATIENT
  Sex: Female
  Weight: 99.8 kg

DRUGS (4)
  1. BYDUREON [Suspect]
     Active Substance: EXENATIDE
     Indication: TYPE 2 DIABETES MELLITUS
     Route: 058
     Dates: start: 20150406
  2. NOVOLOG [Concomitant]
     Active Substance: INSULIN ASPART
     Dosage: 10 UNITS
  3. AMARYL [Concomitant]
     Active Substance: GLIMEPIRIDE
  4. LEVEMIR [Concomitant]
     Active Substance: INSULIN DETEMIR
     Dosage: 40 UNITS

REACTIONS (8)
  - Vomiting [Unknown]
  - Blood glucose decreased [Unknown]
  - Dehydration [Unknown]
  - Reflux gastritis [Unknown]
  - Nausea [Unknown]
  - Hypophagia [Unknown]
  - Blood creatinine increased [Unknown]
  - Decreased appetite [Unknown]

NARRATIVE: CASE EVENT DATE: 20150405
